FAERS Safety Report 8029518 (Version 2)
Quarter: 2013Q3

REPORT INFORMATION
  Report Type: Spontaneous
  Country: US (occurrence: US)
  Receive Date: 20110711
  Receipt Date: 20130829
  Transmission Date: 20140515
  Serious: Yes (Other)
  Sender: FDA-Public Use
  Company Number: US-PFIZER INC-2011151799

PATIENT
  Age: 41 Year
  Sex: Female

DRUGS (3)
  1. CHANTIX [Suspect]
     Indication: SMOKING CESSATION THERAPY
     Dosage: UNK,
     Dates: start: 20100201, end: 20100501
  2. CHANTIX [Suspect]
     Dosage: STARTER PACK
     Dates: start: 20100316
  3. CHANTIX [Suspect]
     Dosage: 1 MG, UNK (1MG CONTINUING PACK )
     Dates: start: 20100408

REACTIONS (2)
  - Intentional overdose [Unknown]
  - Suicide attempt [Unknown]
